FAERS Safety Report 4570577-4 (Version None)
Quarter: 2005Q1

REPORT INFORMATION
  Report Type: 
  Country: None (occurrence: None)
  Receive Date: 20050202
  Receipt Date: 20050113
  Transmission Date: 20050727
  Serious: Yes (Hospitalization)
  Sender: FDA-Public Use
  Company Number: JP_041205516

PATIENT
  Age: 18 Day
  Sex: Male
  Weight: 2 kg

DRUGS (6)
  1. VANCOMYCIN [Suspect]
     Indication: SEPSIS
     Dosage: 25 MG/3 DAY
     Dates: start: 20040821, end: 20040905
  2. DOPAMINE HYDROCHLORIDE [Concomitant]
  3. DOBUTAMINE HCL [Concomitant]
  4. POTASSIUM CHLORIDE [Concomitant]
  5. DORMICUM (MIDAZOLAM MALEATE) [Concomitant]
  6. SANDOSTATIN [Concomitant]

REACTIONS (7)
  - C-REACTIVE PROTEIN INCREASED [None]
  - DRUG INEFFECTIVE [None]
  - HEART RATE ABNORMAL [None]
  - NEONATAL DISORDER [None]
  - NEUTROPHIL COUNT DECREASED [None]
  - URINARY TRACT INFECTION [None]
  - WHITE BLOOD CELL COUNT DECREASED [None]
